FAERS Safety Report 17742406 (Version 2)
Quarter: 2020Q2

REPORT INFORMATION
  Report Type: Spontaneous
  Country: IT (occurrence: IT)
  Receive Date: 20200505
  Receipt Date: 20200514
  Transmission Date: 20200714
  Serious: Yes (Hospitalization)
  Sender: FDA-Public Use
  Company Number: IT-TEVA-2020-IT-1229778

PATIENT
  Age: 96 Year
  Sex: Male

DRUGS (12)
  1. PLAQUENIL [Suspect]
     Active Substance: HYDROXYCHLOROQUINE SULFATE
     Indication: CORONAVIRUS INFECTION
     Dosage: 400 MG
     Route: 065
     Dates: start: 20200418, end: 20200418
  2. LASIX [Concomitant]
     Active Substance: FUROSEMIDE
  3. NOVORAPID [Concomitant]
     Active Substance: INSULIN ASPART
  4. DELTACORTENE 25 MG COMPRESSE [Concomitant]
     Active Substance: PREDNISONE
  5. NORMIX [Concomitant]
     Active Substance: RIFAXIMIN
  6. LANTUS [Concomitant]
     Active Substance: INSULIN GLARGINE
  7. PANTORC 20 MG COMPRESSE GASTRORESISTENTI [Concomitant]
     Active Substance: PANTOPRAZOLE SODIUM
  8. METOPROLOLO [Concomitant]
     Dosage: 50 MG
  9. AZITHROMYCIN ANHYDROUS. [Suspect]
     Active Substance: AZITHROMYCIN ANHYDROUS
     Indication: CORONAVIRUS INFECTION
     Dosage: 500 MG
     Route: 065
     Dates: start: 20200416, end: 20200417
  10. CARDIRENE 75 MG [Concomitant]
     Active Substance: ASPIRIN DL-LYSINE
  11. DOBETIN [Concomitant]
  12. MOVICOL [Concomitant]
     Active Substance: POLYETHYLENE GLYCOL 3350\POTASSIUM CHLORIDE\SODIUM BICARBONATE\SODIUM CHLORIDE

REACTIONS (3)
  - Arrhythmia [Recovered/Resolved]
  - Off label use [Recovered/Resolved]
  - Extrasystoles [Recovered/Resolved]

NARRATIVE: CASE EVENT DATE: 20200418
